FAERS Safety Report 16482730 (Version 2)
Quarter: 2019Q3

REPORT INFORMATION
  Report Type: Spontaneous
  Country: TH (occurrence: TH)
  Receive Date: 20190627
  Receipt Date: 20190705
  Transmission Date: 20191004
  Serious: Yes (Hospitalization, Other)
  Sender: FDA-Public Use
  Company Number: TH-ASTELLAS-2019US026256

PATIENT
  Age: 57 Year
  Sex: Male

DRUGS (4)
  1. TACROLIMUS. [Suspect]
     Active Substance: TACROLIMUS
     Indication: LIVER TRANSPLANT
     Dosage: 2 MG, ONCE DAILY (GIVEN FROM POD4)
     Route: 065
     Dates: start: 201707
  2. BASILIXIMAB [Suspect]
     Active Substance: BASILIXIMAB
     Indication: LIVER TRANSPLANT
     Dosage: 20 MG, TOTAL DOSE (ONLY SINGLE DOSE 20 G AT POD1 FIRST TRANSPLANT)
     Route: 042
     Dates: start: 201707
  3. METHYLPREDNISOLONE. [Suspect]
     Active Substance: METHYLPREDNISOLONE
     Indication: LIVER TRANSPLANT
     Dosage: UNK UNK, UNKNOWN FREQ.
     Route: 065
     Dates: start: 201707
  4. MYCOPHENOLATE MOFETIL. [Suspect]
     Active Substance: MYCOPHENOLATE MOFETIL
     Indication: LIVER TRANSPLANT
     Dosage: 1 G, ONCE DAILY (GIVEN FROM POD7 )
     Route: 065
     Dates: start: 201707

REACTIONS (4)
  - Transplant failure [Unknown]
  - Portal vein thrombosis [Unknown]
  - Hepatic artery thrombosis [Unknown]
  - Phaeohyphomycosis [Unknown]

NARRATIVE: CASE EVENT DATE: 2017
